FAERS Safety Report 5034912-5 (Version None)
Quarter: 2006Q2

REPORT INFORMATION
  Report Type: 
  Country: None (occurrence: None)
  Receive Date: 20060627
  Receipt Date: 20060615
  Transmission Date: 20061013
  Serious: Yes (Other)
  Sender: FDA-Public Use
  Company Number: CA-BRISTOL-MYERS SQUIBB COMPANY-13414099

PATIENT
  Age: 5 Year
  Sex: Male

DRUGS (1)
  1. CEFZIL [Suspect]
     Indication: BRONCHITIS
     Dates: start: 20060515, end: 20060618

REACTIONS (2)
  - HALLUCINATION [None]
  - PRURITUS [None]
